FAERS Safety Report 8351427 (Version 5)
Quarter: 2014Q1

REPORT INFORMATION
  Report Type: Report from Study
  Country: BR (occurrence: BR)
  Receive Date: 20120124
  Receipt Date: 20140110
  Transmission Date: 20141002
  Serious: Yes (Hospitalization, Other)
  Sender: FDA-Public Use
  Company Number: BR-ROCHE-1030946

PATIENT
  Age: 39 Year
  Sex: Female
  Weight: 66 kg

DRUGS (10)
  1. MABTHERA [Suspect]
     Indication: RHEUMATOID ARTHRITIS
     Route: 042
     Dates: start: 200906
  2. MABTHERA [Suspect]
     Route: 042
     Dates: start: 20100127
  3. MABTHERA [Suspect]
     Route: 042
     Dates: start: 20100201
  4. MABTHERA [Suspect]
     Route: 042
     Dates: start: 20101001
  5. MABTHERA [Suspect]
     Route: 042
     Dates: start: 20101015
  6. ADVIL [Concomitant]
     Indication: PAIN
  7. COMPOUNDED CREAM (TRIAMCINOLONE/DIPHENHYDRAMINE/VISC LIDO) [Concomitant]
  8. ACETAMINOPHEN [Concomitant]
     Indication: PREMEDICATION
     Route: 048
  9. DIPHENIDOL [Concomitant]
  10. METHYLPREDNISOLONE [Concomitant]
     Indication: PREMEDICATION

REACTIONS (14)
  - Joint range of motion decreased [Recovered/Resolved]
  - Arthritis [Recovered/Resolved]
  - Therapeutic response decreased [Unknown]
  - Arthritis [Not Recovered/Not Resolved]
  - Dyspnoea [Recovered/Resolved]
  - Nausea [Recovered/Resolved]
  - Dizziness [Recovered/Resolved]
  - Pain [Unknown]
  - Malaise [Recovered/Resolved]
  - Pain in extremity [Unknown]
  - Local swelling [Unknown]
  - Urinary tract infection [Unknown]
  - Somnolence [Recovered/Resolved]
  - Back pain [Recovered/Resolved]
